FAERS Safety Report 9230332 (Version 1)
Quarter: 2013Q2

REPORT INFORMATION
  Report Type: Spontaneous
  Country: US (occurrence: US)
  Receive Date: 20130415
  Receipt Date: 20130415
  Transmission Date: 20140414
  Serious: Yes (Death, Hospitalization)
  Sender: FDA-Public Use
  Company Number: PHEH2013US008189

PATIENT
  Age: 59 Year
  Sex: Female

DRUGS (22)
  1. GLEEVEC [Suspect]
     Dosage: 0.75 DF, EVERY DAY
     Route: 048
  2. LETAIRIS [Concomitant]
     Dosage: 10 MG, UNK
  3. SYNTHROID [Concomitant]
     Dosage: 175 UG, UNK
  4. PLAQUENIL [Concomitant]
     Dosage: 200 MG, UNK
  5. PREVACID [Concomitant]
     Dosage: 30 MG, UNK
  6. VIAGRA [Concomitant]
     Dosage: 50 MG, UNK
  7. FUROSEMIDE [Concomitant]
     Dosage: 80 MG, UNK
  8. POTASSIUM [Concomitant]
     Dosage: 75 MG, UNK
  9. OXYCONTIN [Concomitant]
     Dosage: 40 MG, UNK
  10. PERCOCET [Concomitant]
     Dosage: UNK UKN, UNK
  11. COLACE [Concomitant]
     Dosage: 100 MG, UNK
  12. ALLEGRA [Concomitant]
     Dosage: 180 MG, UNK
  13. SPIRONOLACTON [Concomitant]
     Dosage: 25 MG, UNK
  14. MULTI [Concomitant]
     Dosage: UNK UKN, UNK
  15. NYSTATIN [Concomitant]
     Dosage: UNK UKN, UNK
  16. MIRALAX [Concomitant]
     Dosage: UNK UKN, UNK
  17. FISH OIL [Concomitant]
     Dosage: UNK UKN, UNK
  18. GLUCOSAMINE [Concomitant]
     Dosage: UNK UKN, UNK
  19. EPOGEN [Concomitant]
     Dosage: 10000 ML, UNK
  20. VELETRI [Concomitant]
     Dosage: 1.5 MG, UNK
  21. ULORIC [Concomitant]
     Dosage: 40 MG, UNK
  22. XGEVA [Concomitant]
     Dosage: UNK UKN, UNK

REACTIONS (4)
  - Death [Fatal]
  - Mental status changes [Unknown]
  - Meningitis [Unknown]
  - Brain abscess [Unknown]
